FAERS Safety Report 7322765-1 (Version None)
Quarter: 2011Q1

REPORT INFORMATION
  Report Type: 
  Country: None (occurrence: None)
  Receive Date: 20110301
  Receipt Date: 20110216
  Transmission Date: 20110831
  Serious: Yes (Other)
  Sender: FDA-Public Use
  Company Number: US-RB-021600-11

PATIENT
  Age: 16 Year
  Sex: Female

DRUGS (2)
  1. DELSYM [Suspect]
     Dosage: PATIENT TOOK ONE DOSE AT 8.30PM ON 15-FEB-2011
     Route: 048
  2. DELSYM [Suspect]
     Dosage: PATIENT TOOK ONE DOSE ON 14-FEB-2011
     Route: 048

REACTIONS (1)
  - CONVULSION [None]
